FAERS Safety Report 6566739-7 (Version None)
Quarter: 2010Q1

REPORT INFORMATION
  Report Type: 
  Country: None (occurrence: None)
  Receive Date: 20100202
  Receipt Date: 20100129
  Transmission Date: 20100710
  Serious: Yes (Death)
  Sender: FDA-Public Use
  Company Number: GB-WYE-G05464010

PATIENT
  Sex: Male

DRUGS (3)
  1. GEMTUZUMAB OZOGAMICIN [Suspect]
     Dosage: UNKNOWN
     Dates: start: 20091128, end: 20091207
  2. DAUNORUBICIN HCL [Concomitant]
     Dosage: UNKNOWN
     Dates: start: 20091128, end: 20091207
  3. CLOFARABINE [Concomitant]
     Dosage: UNKNOWN
     Dates: start: 20091128, end: 20091207

REACTIONS (2)
  - CEREBRAL HAEMORRHAGE [None]
  - NEUTROPENIC SEPSIS [None]
